FAERS Safety Report 10111307 (Version 2)
Quarter: 2014Q3

REPORT INFORMATION
  Report Type: Spontaneous
  Country: US (occurrence: None)
  Receive Date: 20140421
  Receipt Date: 20140722
  Transmission Date: 20150326
  Serious: Yes (Other)
  Sender: FDA-Public Use
  Company Number: AEGR000264

PATIENT
  Age: 79 Year
  Sex: Female
  Weight: 74.8 kg

DRUGS (9)
  1. WELCHOL (COLESEVELAM HYDROCHLORIDE) [Concomitant]
  2. NIACIN (NICOTINIC ACID) [Concomitant]
  3. ZETIA [Concomitant]
     Active Substance: EZETIMIBE
  4. BYSTOLIC (NEBIVOIOL HYDROCHLORIDE) [Concomitant]
  5. OMEGA 3 (FISH OIL) [Concomitant]
     Active Substance: OMEGA-3 FATTY ACIDS
  6. JUXTAPID [Suspect]
     Active Substance: LOMITAPIDE MESYLATE
     Indication: TYPE IIA HYPERLIPIDAEMIA
     Route: 048
     Dates: start: 201312
  7. VIT E (TOCOPHEROL) [Concomitant]
  8. CALCIUM (CALCIUM GLUCONATE, CALCIUM SACCHARATE) [Concomitant]
  9. VITAMIN D3 [Concomitant]
     Active Substance: CHOLECALCIFEROL

REACTIONS (4)
  - Diarrhoea [None]
  - Decreased appetite [None]
  - Muscle spasms [None]
  - Weight decreased [None]

NARRATIVE: CASE EVENT DATE: 201312
